FAERS Safety Report 10232541 (Version 1)
Quarter: 2014Q2

REPORT INFORMATION
  Report Type: Other
  Country: GB (occurrence: GB)
  Receive Date: 20140612
  Receipt Date: 20140612
  Transmission Date: 20141212
  Serious: Yes (Other)
  Sender: FDA-Public Use
  Company Number: GB-LUPIN PHARMACEUTICALS INC.-2014-01135

PATIENT
  Age: 41 Year
  Sex: Female

DRUGS (9)
  1. ETHAMBUTOL [Suspect]
     Indication: LYMPHADENITIS
     Route: 065
  2. ETHAMBUTOL [Suspect]
     Route: 065
  3. ISONIAZID [Suspect]
     Indication: LYMPHADENITIS
     Route: 065
  4. ISONIAZID [Suspect]
     Route: 065
  5. PYRAZINAMIDE [Suspect]
     Indication: LYMPHADENITIS
     Route: 065
  6. PYRAZINAMIDE [Suspect]
     Route: 065
  7. RIFAMPICIN [Suspect]
     Indication: LYMPHADENITIS
     Route: 065
  8. RIFABUTIN [Suspect]
     Indication: LYMPHADENITIS
     Route: 065
  9. RIFABUTIN [Suspect]
     Route: 065

REACTIONS (1)
  - Drug reaction with eosinophilia and systemic symptoms [Recovered/Resolved]
